FAERS Safety Report 4321833-6 (Version None)
Quarter: 2004Q1

REPORT INFORMATION
  Report Type: 
  Country: None (occurrence: None)
  Receive Date: 20040322
  Receipt Date: 20040322
  Transmission Date: 20041129
  Serious: Yes (Hospitalization)
  Sender: FDA-Public Use
  Company Number: None

PATIENT
  Age: 80 Year
  Sex: Male
  Weight: 69.2 kg

DRUGS (11)
  1. FLUDARABINE ATG 22200 MG X2 011004-011104 [Suspect]
     Indication: CHEMOTHERAPY
     Dosage: 56 MG QD IV
     Route: 042
     Dates: start: 20040105, end: 20040109
  2. CYTOXAN [Suspect]
     Dosage: 1.86G QD IV
     Route: 042
     Dates: start: 20040110, end: 20040111
  3. CYCLOSPORINE [Concomitant]
  4. PREVACID [Concomitant]
  5. MAG OXIDE [Concomitant]
  6. TRIAMCINOLONE [Concomitant]
  7. ACYCLOVIR [Concomitant]
  8. PREDNISONE [Concomitant]
  9. FLUCONAZOLE [Concomitant]
  10. BACTRIM DS [Concomitant]
  11. CELLCEPT [Concomitant]

REACTIONS (4)
  - BLOOD ALKALINE PHOSPHATASE ABNORMAL [None]
  - BLOOD BILIRUBIN ABNORMAL [None]
  - CYTOMEGALOVIRUS INFECTION [None]
  - RENAL FAILURE [None]
